FAERS Safety Report 8520082 (Version 2)
Quarter: 2019Q2

REPORT INFORMATION
  Report Type: Spontaneous
  Country: NO (occurrence: NO)
  Receive Date: 20120418
  Receipt Date: 20190627
  Transmission Date: 20190711
  Serious: Yes (Congenital Anomaly)
  Sender: FDA-Public Use
  Company Number: PHHY2012NO031141

PATIENT

DRUGS (1)
  1. LEVETIRACETAM. [Suspect]
     Active Substance: LEVETIRACETAM
     Indication: EPILEPSY
     Dosage: UNK (DAILY DOSE: 2250 MG (FIRST TRIMESTER))
     Route: 064

REACTIONS (2)
  - Pierre Robin syndrome [Unknown]
  - Foetal exposure during pregnancy [Unknown]
